FAERS Safety Report 18379988 (Version 1)
Quarter: 2020Q4

REPORT INFORMATION
  Report Type: Spontaneous
  Country: JP (occurrence: JP)
  Receive Date: 20201014
  Receipt Date: 20201014
  Transmission Date: 20210114
  Serious: Yes (Death)
  Sender: FDA-Public Use
  Company Number: JP-ROCHE-2694301

PATIENT
  Age: 78 Year
  Sex: Male
  Weight: 56 kg

DRUGS (16)
  1. CARBOPLATIN. [Suspect]
     Active Substance: CARBOPLATIN
     Indication: SMALL CELL LUNG CANCER EXTENSIVE STAGE
     Route: 041
     Dates: start: 20200625, end: 20200625
  2. TECENTRIQ [Suspect]
     Active Substance: ATEZOLIZUMAB
     Indication: SMALL CELL LUNG CANCER EXTENSIVE STAGE
     Route: 041
     Dates: start: 20200625, end: 20200625
  3. METOCLOPRAMIDE. [Concomitant]
     Active Substance: METOCLOPRAMIDE
     Indication: NAUSEA
     Dosage: SIX BATCHES
     Route: 048
     Dates: start: 20200831, end: 20200910
  4. TECENTRIQ [Suspect]
     Active Substance: ATEZOLIZUMAB
     Route: 041
     Dates: start: 20200723, end: 20200723
  5. AUGMENTIN [Concomitant]
     Active Substance: AMOXICILLIN\CLAVULANATE POTASSIUM
     Route: 048
     Dates: end: 20200831
  6. CARBOPLATIN. [Suspect]
     Active Substance: CARBOPLATIN
     Route: 041
     Dates: start: 20200723, end: 20200723
  7. BICALUTAMIDE. [Concomitant]
     Active Substance: BICALUTAMIDE
     Route: 048
     Dates: start: 20200831, end: 20200910
  8. OXYCONTIN TR [Concomitant]
     Active Substance: OXYCODONE HYDROCHLORIDE
     Route: 048
     Dates: end: 20200831
  9. SENNOSIDE [Concomitant]
     Active Substance: SENNOSIDES
     Route: 048
     Dates: start: 20200831, end: 20200910
  10. AMOXICILLIN HYDRATE [Concomitant]
     Active Substance: AMOXICILLIN
     Route: 048
     Dates: end: 20200831
  11. MIYA-BM [Concomitant]
     Active Substance: CLOSTRIDIUM BUTYRICUM SPORES STRAIN M-55
     Route: 048
     Dates: end: 20200831
  12. CALONAL [Concomitant]
     Active Substance: ACETAMINOPHEN
     Route: 048
     Dates: end: 20200831
  13. ETOPOSIDE. [Suspect]
     Active Substance: ETOPOSIDE
     Indication: SMALL CELL LUNG CANCER EXTENSIVE STAGE
     Route: 041
     Dates: start: 20200625, end: 20200625
  14. ETOPOSIDE. [Suspect]
     Active Substance: ETOPOSIDE
     Route: 041
     Dates: start: 20200723, end: 20200723
  15. MAGMITT [Concomitant]
     Active Substance: MAGNESIUM OXIDE
     Route: 048
     Dates: start: 20200831, end: 20200910
  16. OXYCODONE [Concomitant]
     Active Substance: OXYCODONE
     Indication: PAIN
     Dosage: 15 BATCHES
     Route: 048
     Dates: end: 20200831

REACTIONS (2)
  - Interstitial lung disease [Fatal]
  - Vocal cord thickening [Unknown]

NARRATIVE: CASE EVENT DATE: 20200824
